FAERS Safety Report 7339212-6 (Version None)
Quarter: 2011Q1

REPORT INFORMATION
  Report Type: 
  Country: None (occurrence: None)
  Receive Date: 20110308
  Receipt Date: 20110301
  Transmission Date: 20110831
  Serious: Yes (Hospitalization)
  Sender: FDA-Public Use
  Company Number: BR-US-EMD SERONO, INC.-7045031

PATIENT
  Sex: Female

DRUGS (4)
  1. NORIPURUM [Concomitant]
  2. DERMOVIT [Concomitant]
  3. REBIF [Suspect]
     Indication: RELAPSING-REMITTING MULTIPLE SCLEROSIS
  4. TYLENOL [Concomitant]

REACTIONS (9)
  - INJECTION SITE ERYTHEMA [None]
  - VISION BLURRED [None]
  - ANAEMIA [None]
  - SPEECH DISORDER [None]
  - HYPOKINESIA [None]
  - INJECTION SITE NODULE [None]
  - DIZZINESS [None]
  - HEADACHE [None]
  - FATIGUE [None]
